FAERS Safety Report 21158700 (Version 2)
Quarter: 2023Q1

REPORT INFORMATION
  Report Type: Other
  Country: CA (occurrence: None)
  Receive Date: 20220802
  Receipt Date: 20230127
  Transmission Date: 20230417
  Serious: No
  Sender: FDA-Public Use
  Company Number: CA-ROCHE-3150354

PATIENT
  Sex: Male

DRUGS (2)
  1. OCREVUS [Suspect]
     Active Substance: OCRELIZUMAB
     Indication: Relapsing-remitting multiple sclerosis
     Dosage: MORE DOSAGE INFORMATION IS 300 MG AT DAY 0 AND 14, THEN 600 MG EVERY 6 MONTH?CONCENTRATE FOR INTRAVE
     Route: 042
     Dates: start: 20200806
  2. GABAPENTIN [Concomitant]
     Active Substance: GABAPENTIN
     Indication: Neuralgia

REACTIONS (4)
  - COVID-19 [Not Recovered/Not Resolved]
  - Urinary tract infection [Unknown]
  - Photopsia [Recovering/Resolving]
  - Memory impairment [Unknown]
